FAERS Safety Report 23302099 (Version 3)
Quarter: 2024Q1

REPORT INFORMATION
  Report Type: Spontaneous
  Country: BE (occurrence: BE)
  Receive Date: 20231215
  Receipt Date: 20240117
  Transmission Date: 20240410
  Serious: Yes (Other)
  Sender: FDA-Public Use
  Company Number: BE-PFIZER INC-PV202300201227

PATIENT
  Age: 4 Year
  Sex: Female

DRUGS (1)
  1. SIROLIMUS [Suspect]
     Active Substance: SIROLIMUS
     Indication: Malformation venous
     Dosage: UNK

REACTIONS (4)
  - Lymphangiosarcoma [Unknown]
  - Lymphoedema [Unknown]
  - Pleural effusion [Unknown]
  - Off label use [Unknown]
